FAERS Safety Report 7150297-2 (Version None)
Quarter: 2010Q4

REPORT INFORMATION
  Report Type: 
  Country: None (occurrence: None)
  Receive Date: 20101210
  Receipt Date: 20101129
  Transmission Date: 20110411
  Serious: Yes (Hospitalization)
  Sender: FDA-Public Use
  Company Number: IT-TEVA-256278ISR

PATIENT
  Age: 65 Year
  Sex: Male

DRUGS (10)
  1. CISPLATIN [Suspect]
     Indication: NON-SMALL CELL LUNG CANCER
     Route: 042
     Dates: start: 20090917, end: 20090917
  2. CISPLATIN [Suspect]
     Route: 042
     Dates: start: 20091008, end: 20091008
  3. CISPLATIN [Suspect]
     Route: 042
     Dates: start: 20091029, end: 20091029
  4. PEMETREXED [Suspect]
     Indication: NON-SMALL CELL LUNG CANCER
     Route: 042
     Dates: start: 20090917, end: 20090917
  5. PEMETREXED [Suspect]
     Route: 042
     Dates: start: 20091008, end: 20091008
  6. PEMETREXED [Suspect]
     Route: 042
     Dates: start: 20091029, end: 20091029
  7. DEXAMETHASONE [Concomitant]
     Dates: start: 20090916, end: 20091029
  8. TROPISETRON [Concomitant]
     Dates: start: 20090917, end: 20091029
  9. FOLIC ACID [Concomitant]
     Dates: start: 20090912
  10. CYANOCOBALAMIN [Concomitant]
     Dates: start: 20090912, end: 20090912

REACTIONS (1)
  - CONSTIPATION [None]
